FAERS Safety Report 4663561-3 (Version None)
Quarter: 2005Q2

REPORT INFORMATION
  Report Type: 
  Country: None (occurrence: None)
  Receive Date: 20050513
  Receipt Date: 20050429
  Transmission Date: 20051028
  Serious: Yes (Hospitalization)
  Sender: FDA-Public Use
  Company Number: 214148

PATIENT
  Age: 56 Year
  Sex: Female
  Weight: 113.5 kg

DRUGS (6)
  1. BEVACIZUMAB (BEVACIZUMAB) PWDR + SOLVENT, INFUSION SOLN, 100MG [Suspect]
     Indication: OVARIAN CANCER
     Dosage: 15 MG/KG, Q3W, INTRAVENOUS
     Route: 042
     Dates: start: 20050407
  2. ATENOLOL [Concomitant]
  3. VERAPAMIL [Concomitant]
  4. LEVOXINE (LEVOTHYROXINE SODIUM) [Concomitant]
  5. WARFARIN SODIUM [Concomitant]
  6. VITAMIN B6 [Concomitant]

REACTIONS (17)
  - ASTHENIA [None]
  - BLOOD PRESSURE SYSTOLIC INCREASED [None]
  - BRADYCARDIA [None]
  - CARDIAC ENZYMES INCREASED [None]
  - CEREBROVASCULAR ACCIDENT [None]
  - CHEYNE-STOKES RESPIRATION [None]
  - ELECTROCARDIOGRAM ST SEGMENT ELEVATION [None]
  - EMPHYSEMA [None]
  - FATIGUE [None]
  - HEART RATE DECREASED [None]
  - HYPOTENSION [None]
  - LOSS OF CONSCIOUSNESS [None]
  - MYOCARDIAL INFARCTION [None]
  - OEDEMA PERIPHERAL [None]
  - PLEURITIC PAIN [None]
  - PULMONARY EMBOLISM [None]
  - SINUS BRADYCARDIA [None]
